FAERS Safety Report 4485718-7 (Version None)
Quarter: 2004Q4

REPORT INFORMATION
  Report Type: 
  Country: None (occurrence: None)
  Receive Date: 20041026
  Receipt Date: 20041016
  Transmission Date: 20050328
  Serious: Yes (Other)
  Sender: FDA-Public Use
  Company Number: GB-GLAXOSMITHKLINE-B0348432A

PATIENT
  Age: 54 Year
  Sex: Male
  Weight: 93 kg

DRUGS (6)
  1. AVANDIA [Suspect]
     Indication: DIABETES MELLITUS
     Dosage: 4MG UNKNOWN
     Route: 048
     Dates: start: 20031016, end: 20031020
  2. METFORMIN HCL [Concomitant]
     Indication: DIABETES MELLITUS
     Dosage: 850MG TWICE PER DAY
     Route: 048
  3. ADALAT [Concomitant]
     Indication: DIABETES MELLITUS
     Dosage: 20MG PER DAY
     Route: 048
  4. ATORVASTATIN CALCIUM [Concomitant]
     Indication: DIABETES MELLITUS
     Dosage: 20MG PER DAY
     Route: 048
  5. ENALAPRIL MALEATE [Concomitant]
     Indication: DIABETES MELLITUS
     Dosage: 15MG PER DAY
     Route: 048
  6. GLICLAZIDE [Concomitant]
     Indication: DIABETES MELLITUS
     Dosage: 240MG PER DAY
     Route: 048
     Dates: end: 20041014

REACTIONS (1)
  - HALLUCINATION, VISUAL [None]
